FAERS Safety Report 15364857 (Version 3)
Quarter: 2018Q3

REPORT INFORMATION
  Report Type: Report from Study
  Country: US (occurrence: US)
  Receive Date: 20180910
  Receipt Date: 20180926
  Transmission Date: 20181010
  Serious: Yes (Other)
  Sender: FDA-Public Use
  Company Number: US-SHIRE-US201834505

PATIENT
  Sex: Male

DRUGS (2)
  1. FLOMAX [Concomitant]
     Active Substance: TAMSULOSIN HYDROCHLORIDE
     Indication: PRODUCT USED FOR UNKNOWN INDICATION
  2. TEDUGLUTIDE [Suspect]
     Active Substance: TEDUGLUTIDE
     Indication: PRODUCT USED FOR UNKNOWN INDICATION
     Dosage: 0.3200  UNK, 1X/DAY:QD
     Route: 065
     Dates: start: 20180904

REACTIONS (6)
  - Transient ischaemic attack [Unknown]
  - Abdominal pain lower [Not Recovered/Not Resolved]
  - Stoma complication [Not Recovered/Not Resolved]
  - Condition aggravated [Unknown]
  - Urine output increased [Not Recovered/Not Resolved]
  - Oedema peripheral [Unknown]
